FAERS Safety Report 4432780-3 (Version None)
Quarter: 2004Q3

REPORT INFORMATION
  Report Type: 
  Country: None (occurrence: None)
  Receive Date: 20040721
  Receipt Date: 20040429
  Transmission Date: 20050211
  Serious: Yes (Hospitalization)
  Sender: FDA-Public Use
  Company Number: 2004017983

PATIENT
  Age: 45 Year
  Sex: Female

DRUGS (10)
  1. RELPAX [Suspect]
     Indication: MIGRAINE
     Dosage: (PRN), ORAL
     Route: 048
  2. VERAPAMIL [Suspect]
     Indication: MIGRAINE PROPHYLAXIS
     Dosage: 240 MG, ORAL
     Route: 048
  3. CITRUS PARADISI FRUIT JUICE (CITRUS PARADISI FRUIT JUICE) [Suspect]
     Indication: ILL-DEFINED DISORDER
     Dosage: ORAL
     Route: 048
  4. TOPIRIMATE (TOPIRIMATE) [Concomitant]
  5. GABAPENTIN [Concomitant]
  6. GLUCOSAMINE (GLUCOSAMINE) [Concomitant]
  7. TRAZODONE HCL [Concomitant]
  8. MIDRID (PARACETAMOL, DICHLORALPHENAZONE, ISOMETHEPTENE) [Concomitant]
  9. CONJUGATED ESTROGENS [Concomitant]
  10. EZETIMIBE (EXETIMIBE) [Concomitant]

REACTIONS (7)
  - BLOOD CHOLESTEROL INCREASED [None]
  - BLOOD PRESSURE INCREASED [None]
  - CHEST DISCOMFORT [None]
  - DRUG INTERACTION [None]
  - HEART RATE ABNORMAL [None]
  - PALPITATIONS [None]
  - SUPRAVENTRICULAR EXTRASYSTOLES [None]
